FAERS Safety Report 9781115 (Version 1)
Quarter: 2013Q4

REPORT INFORMATION
  Report Type: Spontaneous
  Country: US (occurrence: None)
  Receive Date: 20131223
  Receipt Date: 20131223
  Transmission Date: 20140711
  Serious: Yes (Disabling)
  Sender: FDA-Public Use
  Company Number: None

PATIENT
  Age: 59 Year
  Sex: Female
  Weight: 80.29 kg

DRUGS (1)
  1. RELISTOR [Suspect]
     Indication: CONSTIPATION
     Dosage: 1 AS NEEDED AS NEEDED INJECTED INTO STOMACH
     Dates: start: 20131024, end: 20131119

REACTIONS (3)
  - Diarrhoea [None]
  - Vomiting projectile [None]
  - Drug ineffective [None]
